FAERS Safety Report 5132484-8 (Version None)
Quarter: 2006Q4

REPORT INFORMATION
  Report Type: 
  Country: None (occurrence: None)
  Receive Date: 20061017
  Receipt Date: 20061002
  Transmission Date: 20070319
  Serious: Yes (Hospitalization)
  Sender: FDA-Public Use
  Company Number: L06-GER-04072-01

PATIENT
  Age: 46 Year
  Sex: Male

DRUGS (4)
  1. CARBAMAZEPINE [Suspect]
     Indication: DRUG WITHDRAWAL SYNDROME
  2. CARBAMAZEPINE [Suspect]
     Indication: DRUG WITHDRAWAL SYNDROME
     Dosage: 1000 MG
  3. VENLAFAXIINE HCL [Concomitant]
  4. LORAZEPAM [Concomitant]

REACTIONS (4)
  - DRUG HYPERSENSITIVITY [None]
  - HALLUCINATION, AUDITORY [None]
  - HEPATOTOXICITY [None]
  - PNEUMONIA [None]
